FAERS Safety Report 6008816 (Version 3)
Quarter: 2013Q3

REPORT INFORMATION
  Report Type: Spontaneous
  Country: FR (occurrence: FR)
  Receive Date: 20060321
  Receipt Date: 20130812
  Transmission Date: 20140515
  Serious: Yes (Hospitalization)
  Sender: FDA-Public Use
  Company Number: FR-BRISTOL-MYERS SQUIBB COMPANY-13310602

PATIENT
  Age: 43 Year
  Sex: Male
  Weight: 68 kg

DRUGS (5)
  1. REYATAZ CAPS 150 MG [Suspect]
     Indication: HIV TEST POSITIVE
     Route: 048
  2. VIDEX EC [Suspect]
     Indication: HIV TEST POSITIVE
     Route: 048
  3. EPIVIR [Suspect]
     Indication: HIV TEST POSITIVE
     Route: 048
  4. NORVIR [Suspect]
     Indication: HIV TEST POSITIVE
     Route: 048
  5. LEDERFOLINE [Suspect]
     Indication: PROPHYLAXIS
     Route: 048

REACTIONS (2)
  - Nephrolithiasis [Unknown]
  - Renal colic [Unknown]
